FAERS Safety Report 7345256-0 (Version None)
Quarter: 2011Q1

REPORT INFORMATION
  Report Type: 
  Country: None (occurrence: None)
  Receive Date: 20110310
  Receipt Date: 20110301
  Transmission Date: 20110831
  Serious: Yes (Hospitalization, Other)
  Sender: FDA-Public Use
  Company Number: US-ELI_LILLY_AND_COMPANY-US201103000590

PATIENT
  Age: 38 Year
  Sex: Female

DRUGS (6)
  1. SINGULAIR [Concomitant]
  2. CYMBALTA [Suspect]
     Dosage: 60 MG, DAILY (1/D)
     Dates: end: 20110225
  3. CYMBALTA [Suspect]
     Dosage: 120 MG, DAILY (1/D)
     Dates: start: 20110228
  4. AMITRIPTYLINE [Concomitant]
     Indication: DEPRESSION
     Dosage: UNK, EACH EVENING
  5. CYMBALTA [Suspect]
     Indication: DEPRESSION
     Dosage: 120 MG, DAILY (1/D)
  6. WELLBUTRIN [Concomitant]
     Indication: DEPRESSION
     Dosage: UNK, EACH MORNING

REACTIONS (7)
  - GAIT DISTURBANCE [None]
  - DEPRESSION [None]
  - NERVOUSNESS [None]
  - PANIC REACTION [None]
  - THINKING ABNORMAL [None]
  - ANXIETY [None]
  - DYSPNOEA [None]
